FAERS Safety Report 9580534 (Version 1)
Quarter: 2013Q3

REPORT INFORMATION
  Report Type: Spontaneous
  Country: US (occurrence: None)
  Receive Date: 20130916
  Receipt Date: 20130916
  Transmission Date: 20140515
  Serious: Yes (Other)
  Sender: FDA-Public Use
  Company Number: JPI-P-033245

PATIENT
  Age: 73 Year
  Sex: Female

DRUGS (8)
  1. XYREM [Suspect]
     Indication: CATAPLEXY
     Dosage: 4.5 GM (2.25 GM, 2 IN 1 D), ORAL
     Route: 048
     Dates: start: 20130606
  2. PRVASTATIN [Concomitant]
  3. ACETYLSALICYLIC ACID [Concomitant]
  4. VITAMIN E [Concomitant]
  5. FISH OIL [Concomitant]
  6. IBUPROFEN [Concomitant]
  7. ARMODAFINIL [Concomitant]
  8. EYE DROPS [Concomitant]

REACTIONS (3)
  - Hypertension [None]
  - Condition aggravated [None]
  - Insomnia [None]
